FAERS Safety Report 6241681-X (Version None)
Quarter: 2009Q2

REPORT INFORMATION
  Report Type: 
  Country: None (occurrence: None)
  Receive Date: 20090623
  Receipt Date: 20090611
  Transmission Date: 20091009
  Serious: Yes (Death, Other)
  Sender: FDA-Public Use
  Company Number: US-ELI_LILLY_AND_COMPANY-US200904006673

PATIENT
  Age: 78 Year
  Sex: Male

DRUGS (5)
  1. ZYPREXA [Suspect]
     Indication: DELUSION
     Dosage: 10 MG, DAILY (1/D)
     Route: 048
     Dates: start: 20090223, end: 20090425
  2. DEPAKOTE [Concomitant]
     Indication: DEMENTIA
     Dosage: 900 MG, DAILY (1/D)
     Route: 048
  3. DEPAKOTE [Concomitant]
     Dosage: 500 MG, 2/D
     Route: 048
  4. ARICEPT [Concomitant]
     Indication: DEMENTIA
     Dosage: 10 MG, DAILY (1/D)
  5. TYLENOL (CAPLET) [Concomitant]
     Indication: PAIN
     Dosage: 650 MG, AS NEEDED

REACTIONS (3)
  - DEATH [None]
  - NEUROLEPTIC MALIGNANT SYNDROME [None]
  - OFF LABEL USE [None]
